FAERS Safety Report 16619906 (Version 1)
Quarter: 2019Q3

REPORT INFORMATION
  Report Type: Spontaneous
  Country: US (occurrence: US)
  Receive Date: 20190723
  Receipt Date: 20190723
  Transmission Date: 20191004
  Serious: No
  Sender: FDA-Public Use
  Company Number: US-AKRON, INC.-2071177

PATIENT
  Sex: Female

DRUGS (1)
  1. INAPSINE [Suspect]
     Active Substance: DROPERIDOL

REACTIONS (1)
  - Autoscopy [Unknown]
